FAERS Safety Report 18424481 (Version 2)
Quarter: 2020Q4

REPORT INFORMATION
  Report Type: Spontaneous
  Country: DE (occurrence: DE)
  Receive Date: 20201026
  Receipt Date: 20201119
  Transmission Date: 20210114
  Serious: Yes (Other)
  Sender: FDA-Public Use
  Company Number: DE-SUN PHARMACEUTICAL INDUSTRIES LTD-2020RR-265321

PATIENT
  Age: 23 Year
  Sex: Female

DRUGS (2)
  1. ISOTRETINOIN. [Suspect]
     Active Substance: ISOTRETINOIN
     Indication: ACNE
     Dosage: 10 MILLIGRAM, DAILY
     Route: 065
     Dates: start: 20200102
  2. ISOTRETINOIN. [Suspect]
     Active Substance: ISOTRETINOIN
     Dosage: 15 MILLIGRAM, DAILY
     Route: 065
     Dates: start: 20200406

REACTIONS (3)
  - Lip dry [Unknown]
  - Dry skin [Unknown]
  - Pregnancy [Unknown]

NARRATIVE: CASE EVENT DATE: 2020
